FAERS Safety Report 20512684 (Version 1)
Quarter: 2022Q1

REPORT INFORMATION
  Report Type: Spontaneous
  Country: SK (occurrence: SK)
  Receive Date: 20220224
  Receipt Date: 20220224
  Transmission Date: 20220424
  Serious: Yes (Hospitalization, Other)
  Sender: FDA-Public Use
  Company Number: SK-BoehringerIngelheim-2022-BI-154442

PATIENT
  Age: 70 Year
  Sex: Male
  Weight: 90 kg

DRUGS (10)
  1. PRADAXA [Suspect]
     Active Substance: DABIGATRAN ETEXILATE MESYLATE
     Indication: Atrial fibrillation
     Route: 048
  2. Betaloc zok 50 [Concomitant]
     Indication: Product used for unknown indication
     Dosage: FORM STRENGTH: 50
  3. Vessel due  250 [Concomitant]
     Indication: Product used for unknown indication
     Dosage: FORM STRENGTH 250
  4. PANTOPRAZOLE SODIUM [Concomitant]
     Active Substance: PANTOPRAZOLE SODIUM
     Indication: Product used for unknown indication
     Dosage: FORM STRENGTH 40
  5. Fokusin 0.4 mg [Concomitant]
     Indication: Product used for unknown indication
  6. Tiapridal 100 mg [Concomitant]
     Indication: Product used for unknown indication
     Dosage: 0-1/2-1
  7. Atoris 20 mg [Concomitant]
     Indication: Product used for unknown indication
  8. BISULEPIN [Concomitant]
     Active Substance: BISULEPIN
     Indication: Product used for unknown indication
  9. Eplerenon 25 [Concomitant]
     Indication: Product used for unknown indication
     Dosage: FORM STRENGTH: 25
  10. Tritace 1.25 [Concomitant]
     Indication: Product used for unknown indication
     Dosage: FORM STRENGTH 1.25

REACTIONS (2)
  - Cerebrovascular accident [Recovered/Resolved]
  - Liver disorder [Unknown]

NARRATIVE: CASE EVENT DATE: 20210202
